FAERS Safety Report 21477214 (Version 1)
Quarter: 2022Q4

REPORT INFORMATION
  Report Type: Spontaneous
  Country: US (occurrence: US)
  Receive Date: 20221019
  Receipt Date: 20221019
  Transmission Date: 20230113
  Serious: No
  Sender: FDA-Public Use
  Company Number: US-APOTEX-2022AP011150

PATIENT
  Sex: Male

DRUGS (4)
  1. AZELASTINE HYDROCHLORIDE [Suspect]
     Active Substance: AZELASTINE HYDROCHLORIDE
     Indication: Sinus disorder
     Dosage: 2 DOSAGE FORM, 2 SPRAYS IN EACH NOSTRIL TWICE A DAY
     Route: 045
  2. AZELASTINE HYDROCHLORIDE [Suspect]
     Active Substance: AZELASTINE HYDROCHLORIDE
     Indication: Hypersensitivity
  3. DESLORATADINE [Concomitant]
     Active Substance: DESLORATADINE
     Indication: Hypersensitivity
     Dosage: 5 MILLIGRAM, QD IN THE EVENING
     Route: 065
  4. DESLORATADINE [Concomitant]
     Active Substance: DESLORATADINE
     Indication: Sinus disorder

REACTIONS (5)
  - Product dose omission issue [Unknown]
  - Product delivery mechanism issue [Unknown]
  - Intentional underdose [Unknown]
  - Incorrect dose administered [Unknown]
  - No adverse event [Unknown]
